FAERS Safety Report 7329857-1 (Version None)
Quarter: 2011Q1

REPORT INFORMATION
  Report Type: 
  Country: None (occurrence: None)
  Receive Date: 20110303
  Receipt Date: 20110223
  Transmission Date: 20110831
  Serious: Yes (Hospitalization, Other)
  Sender: FDA-Public Use
  Company Number: BR-PFIZER INC-2011021964

PATIENT
  Age: 60 Year
  Sex: Female

DRUGS (7)
  1. LYRICA [Suspect]
     Indication: TENDON DISORDER
     Dosage: 75MG DAILY
     Route: 048
     Dates: start: 20100101
  2. TYLEX CD [Suspect]
  3. CODEINE PHOSPHATE/PARACETAMOL [Suspect]
  4. ATACAND [Concomitant]
     Dosage: UNK
  5. GABAPENTIN [Suspect]
     Indication: PAIN
  6. IBUPROFEN [Concomitant]
     Dosage: UNK
  7. OMEPRAZOLE [Concomitant]
     Dosage: UNK

REACTIONS (10)
  - MUSCLE TWITCHING [None]
  - MEMORY IMPAIRMENT [None]
  - PAIN [None]
  - SPEECH DISORDER [None]
  - INSOMNIA [None]
  - MUSCULAR WEAKNESS [None]
  - CONSTIPATION [None]
  - NERVOUSNESS [None]
  - VISION BLURRED [None]
  - HYPERHIDROSIS [None]
